FAERS Safety Report 7410846-3 (Version None)
Quarter: 2011Q2

REPORT INFORMATION
  Report Type: 
  Country: None (occurrence: None)
  Receive Date: 20110405
  Receipt Date: 20110321
  Transmission Date: 20111010
  Serious: Yes (Death)
  Sender: FDA-Public Use
  Company Number: 2011BN000017

PATIENT
  Age: 64 Year
  Sex: Male

DRUGS (2)
  1. MELPHALAN HYDROCHLORIDE [Suspect]
     Indication: MULTIPLE MYELOMA
     Dosage: 2 MG;QD
  2. PREDNISOLONE [Suspect]
     Indication: MULTIPLE MYELOMA
     Dosage: 10 MG;QD

REACTIONS (4)
  - NEOPLASM MALIGNANT [None]
  - SUDDEN DEATH [None]
  - GASTROINTESTINAL DISORDER [None]
  - MULTIPLE MYELOMA [None]
